FAERS Safety Report 11701073 (Version 1)
Quarter: 2015Q4

REPORT INFORMATION
  Report Type: Spontaneous
  Country: US (occurrence: US)
  Receive Date: 20151105
  Receipt Date: 20151105
  Transmission Date: 20160304
  Serious: Yes (Other)
  Sender: FDA-Public Use
  Company Number: US-PFIZER INC-2015360487

PATIENT
  Age: 56 Year
  Sex: Female
  Weight: 69 kg

DRUGS (7)
  1. PROTONIX [Concomitant]
     Active Substance: PANTOPRAZOLE SODIUM
     Dosage: 40 MG, UNK
  2. LOSARTAN. [Concomitant]
     Active Substance: LOSARTAN
     Indication: HYPERTENSION
     Dosage: UNK (50-12.5 MG), 1X/DAY (EVERY MORNING)
  3. PAXIL [Concomitant]
     Active Substance: PAROXETINE HYDROCHLORIDE
     Dosage: 20 MG, 1X/DAY (AT NIGHT)
  4. OXYCONTIN [Concomitant]
     Active Substance: OXYCODONE HYDROCHLORIDE
     Indication: MUSCULOSKELETAL STIFFNESS
     Dosage: 7.5/325 MG, TWO DOSE IN MORNING AND TWO AT NIGHT
  5. LYRICA [Suspect]
     Active Substance: PREGABALIN
     Indication: COMPLEX REGIONAL PAIN SYNDROME
     Dosage: 25 MG, 3X/DAY
     Dates: start: 20151009
  6. SYNTHROID [Concomitant]
     Active Substance: LEVOTHYROXINE SODIUM
     Dosage: 100 ?G, UNK
  7. OXYCONTIN [Concomitant]
     Active Substance: OXYCODONE HYDROCHLORIDE
     Indication: MOVEMENT DISORDER

REACTIONS (12)
  - Pharyngeal oedema [Unknown]
  - Lip swelling [Not Recovered/Not Resolved]
  - Panic reaction [Unknown]
  - Hypersensitivity [Unknown]
  - Eye swelling [Not Recovered/Not Resolved]
  - Dyspnoea [Unknown]
  - Peripheral swelling [Not Recovered/Not Resolved]
  - Pain [Not Recovered/Not Resolved]
  - Pyrexia [Unknown]
  - Drug ineffective for unapproved indication [Unknown]
  - Chills [Unknown]
  - Hypersomnia [Unknown]

NARRATIVE: CASE EVENT DATE: 20151022
